FAERS Safety Report 5465725-8 (Version None)
Quarter: 2007Q3

REPORT INFORMATION
  Report Type: 
  Country: None (occurrence: None)
  Receive Date: 20070919
  Receipt Date: 20070919
  Transmission Date: 20080115
  Serious: Yes (Other)
  Sender: FDA-Public Use
  Company Number: None

PATIENT
  Age: 71 Year
  Sex: Female

DRUGS (1)
  1. TRUSOPT OCUMETR PLUS SOL 10ML - 2% MERCK + CO., INC. [Suspect]
     Indication: GLAUCOMA
     Dosage: INSTILL 1 DROP EVERY 8 HOURS IN THE RIGHT EYE

REACTIONS (2)
  - FOREIGN BODY SENSATION IN EYES [None]
  - PHARMACEUTICAL PRODUCT COMPLAINT [None]
